FAERS Safety Report 22395064 (Version 1)
Quarter: 2023Q2

REPORT INFORMATION
  Report Type: Spontaneous
  Country: US (occurrence: None)
  Receive Date: 20230531
  Receipt Date: 20230531
  Transmission Date: 20230722
  Serious: Yes (Death)
  Sender: FDA-Public Use
  Company Number: None

PATIENT
  Sex: Male

DRUGS (20)
  1. SORAFENIB [Suspect]
     Active Substance: SORAFENIB
     Indication: Bone cancer
     Route: 048
     Dates: start: 20230331
  2. ADDERALL XR [Concomitant]
     Active Substance: AMPHETAMINE ASPARTATE\AMPHETAMINE SULFATE\DEXTROAMPHETAMINE SACCHARATE\DEXTROAMPHETAMINE SULFATE
  3. CENTRUM CHW SILVER [Concomitant]
  4. MINERALS\VITAMINS [Concomitant]
     Active Substance: MINERALS\VITAMINS
  5. CIALIS [Concomitant]
  6. CLONAZEPAM [Concomitant]
     Active Substance: CLONAZEPAM
  7. COLCHICINE [Concomitant]
     Active Substance: COLCHICINE
  8. GABAPENTIN [Concomitant]
     Active Substance: GABAPENTIN
  9. GUAIFENESIN SOL CODEINE [Concomitant]
  10. KLOONOPIN [Concomitant]
  11. LIDO/PRILOCN CRE [Concomitant]
  12. MAG OXIDE [Concomitant]
  13. MAGNESIUM OXIDE [Concomitant]
     Active Substance: MAGNESIUM OXIDE
  14. NALOXONE HCL [Concomitant]
  15. ONDANSETRON [Concomitant]
  16. PRILOSEC OTC [Concomitant]
     Active Substance: OMEPRAZOLE MAGNESIUM
  17. PROCHLORPER [Concomitant]
  18. SEROQUEL [Concomitant]
     Active Substance: QUETIAPINE FUMARATE
  19. VIIBRYD [Concomitant]
     Active Substance: VILAZODONE HYDROCHLORIDE
  20. XARELTO [Concomitant]
     Active Substance: RIVAROXABAN

REACTIONS (1)
  - Death [None]
